FAERS Safety Report 9457841 (Version 1)
Quarter: 2013Q3

REPORT INFORMATION
  Report Type: Spontaneous
  Country: US (occurrence: None)
  Receive Date: 20130809
  Receipt Date: 20130809
  Transmission Date: 20140515
  Serious: Yes (Other)
  Sender: FDA-Public Use
  Company Number: JPI-P-034076

PATIENT
  Age: 39 Year
  Sex: Female

DRUGS (10)
  1. XYREM ?(500 MILLIGRAM/MILLILITERS, SOLUTION)(SODIUM OXYBATE) [Suspect]
     Indication: NARCOLEPSY
     Dosage: 2.25 GM 2 IN 1 D
     Route: 048
     Dates: start: 20080325, end: 20120809
  2. LMAOTRIGINE (UNKNOWN) [Concomitant]
  3. MODAFENIL (UNKNWON) [Concomitant]
  4. ARMODAFENIL (UNKNOWN) [Concomitant]
  5. BENZONATATE (CAPSULES) [Concomitant]
  6. FAMOTIDINE (TABLETS) [Concomitant]
  7. DEXTROAMPHTAMINE (TABLETS) [Concomitant]
  8. OXYCODONE HCL (TABLETS) [Concomitant]
  9. BOOSTRIX (UNKOWN) [Concomitant]
  10. FLUARIX (INKNOWN) [Concomitant]

REACTIONS (9)
  - Abortion threatened [None]
  - Cholecystitis [None]
  - Cholecystectomy [None]
  - Renal disorder [None]
  - Cyst [None]
  - Back pain [None]
  - Sciatica [None]
  - Cholelithiasis [None]
  - Cough [None]
